FAERS Safety Report 18879075 (Version 6)
Quarter: 2022Q3

REPORT INFORMATION
  Report Type: Other
  Country: BE (occurrence: None)
  Receive Date: 20210211
  Receipt Date: 20220902
  Transmission Date: 20221026
  Serious: No
  Sender: FDA-Public Use
  Company Number: BE-ROCHE-2765474

PATIENT
  Sex: Female
  Weight: 94 kg

DRUGS (44)
  1. OCRELIZUMAB [Suspect]
     Active Substance: OCRELIZUMAB
     Indication: Relapsing-remitting multiple sclerosis
     Dosage: 250 ML ?600 MG DOSE FOR EVERY 6 MONTHS.?MOST RECENT DOSE PRIOR TO AE 09/JUL/2019
     Route: 042
     Dates: start: 20190709
  2. GLATIRAMER ACETATE [Concomitant]
     Active Substance: GLATIRAMER ACETATE
     Dates: start: 201802, end: 201906
  3. CETIRIZINE [Concomitant]
     Active Substance: CETIRIZINE HYDROCHLORIDE
     Dosage: ONCE BEFORE INFUSION
     Route: 048
     Dates: start: 20190723, end: 20190723
  4. CETIRIZINE [Concomitant]
     Active Substance: CETIRIZINE HYDROCHLORIDE
     Dosage: ONCE BEFORE INFUSION
     Route: 048
     Dates: start: 20190709, end: 20190709
  5. CETIRIZINE [Concomitant]
     Active Substance: CETIRIZINE HYDROCHLORIDE
     Dosage: ONCE BEFORE INFUSION
     Route: 048
     Dates: start: 20200728, end: 20200728
  6. CETIRIZINE [Concomitant]
     Active Substance: CETIRIZINE HYDROCHLORIDE
     Dosage: ONCE BEFORE INFUSION
     Route: 048
     Dates: start: 20200124, end: 20200124
  7. CETIRIZINE [Concomitant]
     Active Substance: CETIRIZINE HYDROCHLORIDE
     Dosage: ONCE BEFORE INFUSION
     Route: 048
     Dates: start: 20210205, end: 20210205
  8. CETIRIZINE [Concomitant]
     Active Substance: CETIRIZINE HYDROCHLORIDE
     Dosage: ONCE BEFORE INFUSION
     Route: 048
     Dates: start: 20210824, end: 20210824
  9. CETIRIZINE [Concomitant]
     Active Substance: CETIRIZINE HYDROCHLORIDE
     Dosage: ONCE BEFORE INFUSION
     Route: 048
     Dates: start: 20220224, end: 20220224
  10. CETIRIZINE [Concomitant]
     Active Substance: CETIRIZINE HYDROCHLORIDE
     Dosage: ONCE BEFORE INFUSION
     Route: 048
     Dates: start: 20220824, end: 20220824
  11. PERFUSALGAN [Concomitant]
     Active Substance: ACETAMINOPHEN
     Dosage: ONCE BEFORE INFUSION
     Route: 042
     Dates: start: 20200728, end: 20200728
  12. PERFUSALGAN [Concomitant]
     Active Substance: ACETAMINOPHEN
     Dosage: ONCE BEFORE INFUSION
     Route: 042
     Dates: start: 20200124, end: 20200124
  13. PERFUSALGAN [Concomitant]
     Active Substance: ACETAMINOPHEN
     Dosage: ONCE BEFORE INFUSION
     Route: 042
     Dates: start: 20210205, end: 20210205
  14. PERFUSALGAN [Concomitant]
     Active Substance: ACETAMINOPHEN
     Dosage: ONCE BEFORE INFUSION
     Route: 042
     Dates: start: 20210824, end: 20210824
  15. PERFUSALGAN [Concomitant]
     Active Substance: ACETAMINOPHEN
     Dosage: ONCE BEFORE INFUSION
     Route: 042
     Dates: start: 20220224, end: 20220224
  16. SOLU-MEDROL [Concomitant]
     Active Substance: METHYLPREDNISOLONE SODIUM SUCCINATE
     Dosage: ONCE BEFORE INFUSION
     Route: 042
     Dates: start: 20200124, end: 20200124
  17. SOLU-MEDROL [Concomitant]
     Active Substance: METHYLPREDNISOLONE SODIUM SUCCINATE
     Dosage: ONCE BEFORE INFUSION
     Route: 042
     Dates: start: 20200728, end: 20200728
  18. SOLU-MEDROL [Concomitant]
     Active Substance: METHYLPREDNISOLONE SODIUM SUCCINATE
     Dosage: ONCE BEFORE INFUSION
     Route: 042
     Dates: start: 20200124, end: 20200124
  19. SOLU-MEDROL [Concomitant]
     Active Substance: METHYLPREDNISOLONE SODIUM SUCCINATE
     Dosage: ONCE BEFORE INFUSION
     Route: 042
     Dates: start: 20190709, end: 20190709
  20. SOLU-MEDROL [Concomitant]
     Active Substance: METHYLPREDNISOLONE SODIUM SUCCINATE
     Dosage: ONCE BEFORE INFUSION
     Route: 042
     Dates: start: 20190723, end: 20190723
  21. SOLU-MEDROL [Concomitant]
     Active Substance: METHYLPREDNISOLONE SODIUM SUCCINATE
     Dosage: ONCE BEFORE INFUSION
     Route: 042
     Dates: start: 20210205, end: 20210205
  22. SOLU-MEDROL [Concomitant]
     Active Substance: METHYLPREDNISOLONE SODIUM SUCCINATE
     Dosage: ONCE BEFORE INFUSION
     Route: 042
     Dates: start: 20210824, end: 20210824
  23. SOLU-MEDROL [Concomitant]
     Active Substance: METHYLPREDNISOLONE SODIUM SUCCINATE
     Dosage: ONCE BEFORE INFUSION
     Route: 042
     Dates: start: 20220224, end: 20220224
  24. SOLU-MEDROL [Concomitant]
     Active Substance: METHYLPREDNISOLONE SODIUM SUCCINATE
     Dosage: ONCE BEFORE INFUSION
     Route: 042
     Dates: start: 20220824, end: 20220824
  25. ZOLPIDEM [Concomitant]
     Active Substance: ZOLPIDEM TARTRATE
     Route: 048
     Dates: start: 20151214
  26. UTROGESTAN [Concomitant]
     Active Substance: PROGESTERONE
     Route: 048
     Dates: start: 20160201
  27. ESTRADIOL [Concomitant]
     Active Substance: ESTRADIOL
     Dates: start: 20160201
  28. ACYCLOVIR [Concomitant]
     Active Substance: ACYCLOVIR
     Route: 048
     Dates: start: 20190708, end: 20190708
  29. ACYCLOVIR [Concomitant]
     Active Substance: ACYCLOVIR
     Route: 048
     Dates: start: 20190709
  30. MELATONIN [Concomitant]
     Active Substance: MELATONIN
     Route: 048
     Dates: start: 201909, end: 20201223
  31. VESICARE [Concomitant]
     Active Substance: SOLIFENACIN SUCCINATE
     Route: 048
     Dates: start: 20200827, end: 20210628
  32. DICLOFENAC [Concomitant]
     Active Substance: DICLOFENAC
     Route: 048
     Dates: start: 20180711, end: 20210205
  33. MAGNESIUM MALATE [Concomitant]
     Active Substance: MAGNESIUM MALATE
     Dosage: AS REQUIRED
     Route: 048
  34. TOPAMAX [Concomitant]
     Active Substance: TOPIRAMATE
     Route: 048
     Dates: start: 20200309
  35. RIBOFLAVIN [Concomitant]
     Active Substance: RIBOFLAVIN
     Route: 048
     Dates: start: 20191216, end: 20200728
  36. ACETAMINOPHEN [Concomitant]
     Active Substance: ACETAMINOPHEN
     Dosage: ONCE BEFORE INFUSION
     Route: 042
     Dates: start: 20190723, end: 20190723
  37. ACETAMINOPHEN [Concomitant]
     Active Substance: ACETAMINOPHEN
     Dosage: ONCE BEFORE INFUSION
     Route: 042
     Dates: start: 20190709, end: 20190709
  38. ACETAMINOPHEN [Concomitant]
     Active Substance: ACETAMINOPHEN
     Dosage: ONCE BEFORE INFUSION
     Route: 042
     Dates: start: 201910, end: 20210628
  39. ACETAMINOPHEN [Concomitant]
     Active Substance: ACETAMINOPHEN
     Dosage: ONCE BEFORE INFUSION
     Route: 042
     Dates: start: 20220824, end: 20220824
  40. CAFFEINE [Concomitant]
     Active Substance: CAFFEINE
     Route: 048
     Dates: start: 201910, end: 20210628
  41. IBUPROFEN [Concomitant]
     Active Substance: IBUPROFEN
     Route: 048
     Dates: start: 2015, end: 20210205
  42. IBUPROFEN [Concomitant]
     Active Substance: IBUPROFEN
     Route: 048
     Dates: start: 201910, end: 20210628
  43. PFIZER-BIONTECH COVID-19 VACCINE [Concomitant]
     Active Substance: TOZINAMERAN
     Indication: Prophylaxis
     Route: 030
     Dates: start: 20210605, end: 20210605
  44. PFIZER-BIONTECH COVID-19 VACCINE [Concomitant]
     Active Substance: TOZINAMERAN
     Route: 030
     Dates: start: 20210710, end: 20210710

REACTIONS (1)
  - Genital herpes simplex [Not Recovered/Not Resolved]
